FAERS Safety Report 17111255 (Version 1)
Quarter: 2019Q4

REPORT INFORMATION
  Report Type: Spontaneous
  Country: US (occurrence: US)
  Receive Date: 20191204
  Receipt Date: 20191204
  Transmission Date: 20200122
  Serious: No
  Sender: FDA-Public Use
  Company Number: US-BAUSCH-BL-2019-061503

PATIENT
  Age: 96 Year
  Sex: Female
  Weight: 63.11 kg

DRUGS (3)
  1. SYNTHROID [Concomitant]
     Active Substance: LEVOTHYROXINE SODIUM
     Indication: PRODUCT USED FOR UNKNOWN INDICATION
     Dosage: 1 (UNIT UNSPECIFIED)
     Route: 048
  2. VITAMIN D [Concomitant]
     Active Substance: VITAMIN D NOS
     Indication: PRODUCT USED FOR UNKNOWN INDICATION
     Route: 048
  3. LATANOPROST OPHTHALMIC SOLUTION 0.005% [Suspect]
     Active Substance: LATANOPROST
     Indication: GLAUCOMA
     Dosage: INTRAOCULAR, A DROP IN EACH EYE BEFORE BED
     Route: 047
     Dates: start: 201905, end: 20191108

REACTIONS (13)
  - Ocular discomfort [Recovering/Resolving]
  - Eye irritation [Recovering/Resolving]
  - Dry eye [Recovering/Resolving]
  - Nasal discomfort [Recovering/Resolving]
  - Headache [Recovering/Resolving]
  - Oropharyngeal discomfort [Recovering/Resolving]
  - Feeling abnormal [Recovering/Resolving]
  - Vision blurred [Recovering/Resolving]
  - Feeling jittery [Recovering/Resolving]
  - Eye pruritus [Recovering/Resolving]
  - Paranasal sinus discomfort [Recovering/Resolving]
  - Eye pain [Recovering/Resolving]
  - Lacrimation increased [Recovering/Resolving]

NARRATIVE: CASE EVENT DATE: 2019
